FAERS Safety Report 10049412 (Version 2)
Quarter: 2014Q2

REPORT INFORMATION
  Report Type: Spontaneous
  Country: JP (occurrence: JP)
  Receive Date: 20140401
  Receipt Date: 20140401
  Transmission Date: 20141212
  Serious: Yes (Hospitalization)
  Sender: FDA-Public Use
  Company Number: JP-ROCHE-1352617

PATIENT
  Age: 75 Year
  Sex: Male

DRUGS (9)
  1. XELODA [Suspect]
     Indication: GASTRIC CANCER RECURRENT
     Dosage: IT IS ADMINISTER/ONE WEEKLY HOLIDAY MEDICINE FOR TWO WEEKS.
     Route: 048
     Dates: start: 20131113, end: 20140213
  2. HERCEPTIN [Suspect]
     Indication: GASTRIC CANCER RECURRENT
     Route: 041
     Dates: start: 20130904, end: 20130904
  3. HERCEPTIN [Suspect]
     Indication: GASTRIC CANCER RECURRENT
     Route: 041
     Dates: start: 20131002, end: 20131002
  4. HERCEPTIN [Suspect]
     Indication: GASTRIC CANCER RECURRENT
     Route: 041
     Dates: start: 20131113, end: 20131113
  5. HERCEPTIN [Suspect]
     Indication: GASTRIC CANCER RECURRENT
     Route: 041
     Dates: start: 20131211
  6. RANDA [Suspect]
     Indication: GASTRIC CANCER RECURRENT
     Route: 041
     Dates: start: 20131113
  7. PACLITAXEL [Concomitant]
     Indication: GASTRIC CANCER
     Route: 041
     Dates: start: 20130904, end: 20130904
  8. PACLITAXEL [Concomitant]
     Route: 041
     Dates: start: 20131009, end: 20131009
  9. PACLITAXEL [Concomitant]
     Route: 041
     Dates: start: 20131031, end: 20131031

REACTIONS (3)
  - Liver disorder [Recovering/Resolving]
  - Neutrophil count increased [Unknown]
  - C-reactive protein increased [Unknown]
